FAERS Safety Report 24679221 (Version 2)
Quarter: 2024Q4

REPORT INFORMATION
  Report Type: Report from Study
  Country: IN (occurrence: IN)
  Receive Date: 20241129
  Receipt Date: 20241205
  Transmission Date: 20250115
  Serious: Yes (Other)
  Sender: NOVARTIS
  Company Number: IN-002147023-NVSC2024IN225297

PATIENT
  Sex: Male

DRUGS (4)
  1. ASCIMINIB [Suspect]
     Active Substance: ASCIMINIB
     Indication: Chronic myeloid leukaemia
     Dosage: 40 MG, BID
     Route: 048
     Dates: start: 20240529
  2. ASCIMINIB [Suspect]
     Active Substance: ASCIMINIB
     Indication: Blast crisis in myelogenous leukaemia
  3. IMATINIB [Suspect]
     Active Substance: IMATINIB
     Indication: Blast crisis in myelogenous leukaemia
     Dosage: UNK
     Route: 048
  4. IMATINIB [Suspect]
     Active Substance: IMATINIB
     Indication: Chronic myeloid leukaemia

REACTIONS (3)
  - Blast crisis in myelogenous leukaemia [Unknown]
  - Treatment failure [Unknown]
  - Splenomegaly [Unknown]
